FAERS Safety Report 11167021 (Version 1)
Quarter: 2015Q2

REPORT INFORMATION
  Report Type: Spontaneous
  Country: DK (occurrence: None)
  Receive Date: 20150603
  Receipt Date: 20150603
  Transmission Date: 20150821
  Serious: Yes (Other)
  Sender: FDA-Public Use
  Company Number: 2015DEPNO00619

PATIENT
  Age: 66 Year

DRUGS (1)
  1. DEPOCYT [Suspect]
     Active Substance: CYTARABINE
     Indication: CENTRAL NERVOUS SYSTEM LYMPHOMA
     Dosage: DAY 2,  TREATMENT PHASE, A1, INTRATHECAL
     Route: 037

REACTIONS (3)
  - Sensory loss [None]
  - Arachnoiditis [None]
  - Toxicity to various agents [None]
